FAERS Safety Report 16460144 (Version 1)
Quarter: 2019Q2

REPORT INFORMATION
  Report Type: Spontaneous
  Country: US (occurrence: US)
  Receive Date: 20190620
  Receipt Date: 20190620
  Transmission Date: 20190711
  Serious: No
  Sender: FDA-Public Use
  Company Number: US-PFIZER INC-2019265689

PATIENT
  Age: 62 Year
  Sex: Female

DRUGS (4)
  1. TYLENOL [Suspect]
     Active Substance: ACETAMINOPHEN
  2. METHOTREXATE SODIUM. [Suspect]
     Active Substance: METHOTREXATE SODIUM
     Dosage: 0.8 ML, WEEKLY
  3. MELOXICAM. [Suspect]
     Active Substance: MELOXICAM
  4. METHOTREXATE SODIUM. [Suspect]
     Active Substance: METHOTREXATE SODIUM
     Dosage: 0.4 ML, WEEKLY
     Route: 058

REACTIONS (5)
  - Viral infection [Unknown]
  - Drug ineffective [Unknown]
  - Incorrect route of product administration [Unknown]
  - Liver function test increased [Unknown]
  - Hepatic steatosis [Unknown]
